FAERS Safety Report 7478549-7 (Version None)
Quarter: 2011Q2

REPORT INFORMATION
  Report Type: 
  Country: None (occurrence: None)
  Receive Date: 20110513
  Receipt Date: 20110505
  Transmission Date: 20111010
  Serious: Yes (Hospitalization)
  Sender: FDA-Public Use
  Company Number: FR-PFIZER INC-2011096475

PATIENT
  Age: 44 Year
  Sex: Female

DRUGS (1)
  1. SIROLIMUS [Suspect]
     Indication: IMMUNOSUPPRESSION
     Dosage: UNK
     Dates: start: 20061123

REACTIONS (1)
  - RENAL CELL CARCINOMA [None]
